FAERS Safety Report 6301828-3 (Version None)
Quarter: 2009Q3

REPORT INFORMATION
  Report Type: 
  Country: None (occurrence: None)
  Receive Date: 20090807
  Receipt Date: 20090723
  Transmission Date: 20100115
  Serious: Yes (Other)
  Sender: FDA-Public Use
  Company Number: RO-ROCHE-644595

PATIENT
  Age: 51 Year
  Sex: Male

DRUGS (2)
  1. INTERFERON ALFA [Suspect]
     Dosage: DRUG NAME: IFN-ALPHA
     Route: 065
  2. RIBAVIRIN [Suspect]
     Route: 065

REACTIONS (2)
  - BASEDOW'S DISEASE [None]
  - OSTEOPOROSIS [None]
